FAERS Safety Report 7947115-9 (Version None)
Quarter: 2011Q4

REPORT INFORMATION
  Report Type: 
  Country: None (occurrence: None)
  Receive Date: 20111129
  Receipt Date: 20111118
  Transmission Date: 20120403
  Serious: Yes (Other)
  Sender: FDA-Public Use
  Company Number: US-ROCHE-792627

PATIENT
  Sex: Female
  Weight: 62.198 kg

DRUGS (3)
  1. NPH INSULIN [Concomitant]
  2. REGULAR INSULIN [Concomitant]
  3. ACCUTANE [Suspect]
     Indication: ACNE
     Route: 065
     Dates: start: 19940101, end: 19941231

REACTIONS (7)
  - ANAL FISTULA [None]
  - DEPRESSION [None]
  - INTESTINAL OBSTRUCTION [None]
  - COLITIS ULCERATIVE [None]
  - CROHN'S DISEASE [None]
  - CHOLANGITIS SCLEROSING [None]
  - INFLAMMATORY BOWEL DISEASE [None]
